FAERS Safety Report 6835351-4 (Version None)
Quarter: 2010Q3

REPORT INFORMATION
  Report Type: 
  Country: None (occurrence: None)
  Receive Date: 20100707
  Receipt Date: 20100628
  Transmission Date: 20110219
  Serious: Yes (Hospitalization)
  Sender: FDA-Public Use
  Company Number: TPA2010A03832

PATIENT
  Age: 62 Year
  Sex: Male

DRUGS (6)
  1. PIOGLITAZONE HCL [Suspect]
     Indication: TYPE 2 DIABETES MELLITUS
     Dosage: 30 MG, 1 IN  1D, PER ORAL
     Route: 048
     Dates: start: 20090625, end: 20091022
  2. METFORMIN HCL [Suspect]
     Dosage: 1000 MG, 2 IN 1 D, PER ORAL
     Route: 048
     Dates: start: 20060101
  3. GLIMEPIRIDE [Suspect]
     Dosage: 4 MG, 1 IN 1 D, PER ORAL
     Route: 048
     Dates: start: 20090512
  4. BENAZEPRIL HYDROCHLORIDE (BENAZEPRIL HYDROCHLORIDE) [Concomitant]
  5. GLIPIZIDE [Concomitant]
  6. CITALOPRAM HYDROBROMIDE [Concomitant]

REACTIONS (9)
  - CARDIAC FAILURE CONGESTIVE [None]
  - CARDIOMEGALY [None]
  - CHRONIC OBSTRUCTIVE PULMONARY DISEASE [None]
  - ELECTROCARDIOGRAM ST-T CHANGE [None]
  - LEFT ATRIAL DILATATION [None]
  - LEFT VENTRICULAR DYSFUNCTION [None]
  - PERICARDIAL EFFUSION [None]
  - RESPIRATORY FAILURE [None]
  - WEIGHT INCREASED [None]
